FAERS Safety Report 8549053-X (Version None)
Quarter: 2012Q3

REPORT INFORMATION
  Report Type: 
  Country: None (occurrence: None)
  Receive Date: 20120730
  Receipt Date: 20120723
  Transmission Date: 20120928
  Serious: No
  Sender: FDA-Public Use
  Company Number: US-PFIZER INC-2012177456

PATIENT
  Sex: Male

DRUGS (2)
  1. TIKOSYN [Suspect]
     Indication: CARDIAC PACEMAKER INSERTION
     Dosage: UNK
  2. LOPID [Suspect]
     Dosage: UNK

REACTIONS (6)
  - PRESYNCOPE [None]
  - DYSPNOEA [None]
  - ABDOMINAL DISCOMFORT [None]
  - FEELING ABNORMAL [None]
  - WEIGHT INCREASED [None]
  - DRUG INTOLERANCE [None]
